FAERS Safety Report 5611356-6 (Version None)
Quarter: 2008Q1

REPORT INFORMATION
  Report Type: 
  Country: None (occurrence: None)
  Receive Date: 20080201
  Receipt Date: 20080121
  Transmission Date: 20080703
  Serious: Yes (Death)
  Sender: FDA-Public Use
  Company Number: GB-PFIZER INC-2008006159

PATIENT
  Age: 40 Year
  Sex: Male

DRUGS (1)
  1. VFEND [Suspect]
     Indication: ANTIFUNGAL PROPHYLAXIS

REACTIONS (3)
  - FUSARIUM INFECTION [None]
  - NEUTROPENIA [None]
  - PYREXIA [None]
